FAERS Safety Report 6983379-6 (Version None)
Quarter: 2010Q3

REPORT INFORMATION
  Report Type: 
  Country: None (occurrence: None)
  Receive Date: 20100914
  Receipt Date: 20100914
  Transmission Date: 20110219
  Serious: No
  Sender: FDA-Public Use
  Company Number: None

PATIENT
  Sex: Female

DRUGS (8)
  1. LIDODERM [Suspect]
     Dosage: 1 PATCH Q12H TOP
     Route: 061
     Dates: start: 20100907, end: 20100907
  2. AMBIEN [Concomitant]
  3. TYLENOL [Concomitant]
  4. DIOVAN [Concomitant]
  5. TRIAMETERENE W/HCTZ [Concomitant]
  6. OMEPRAZOLE [Concomitant]
  7. MIRTAZAPINE [Concomitant]
  8. SIMVASTATIN [Concomitant]

REACTIONS (3)
  - FALL [None]
  - HEAD INJURY [None]
  - LOSS OF CONSCIOUSNESS [None]
